FAERS Safety Report 15853263 (Version 1)
Quarter: 2019Q1

REPORT INFORMATION
  Report Type: Spontaneous
  Country: US (occurrence: US)
  Receive Date: 20190122
  Receipt Date: 20190122
  Transmission Date: 20190417
  Serious: No
  Sender: FDA-Public Use
  Company Number: US-GLAXOSMITHKLINE-US2019004836

PATIENT
  Age: 38 Year
  Sex: Female

DRUGS (2)
  1. BENLYSTA [Suspect]
     Active Substance: BELIMUMAB
     Indication: SYSTEMIC LUPUS ERYTHEMATOSUS
     Dosage: 200 MG, WE
     Route: 058
     Dates: start: 201807
  2. TETRACYCLINE [Suspect]
     Active Substance: TETRACYCLINE
     Indication: SKIN BACTERIAL INFECTION
     Dosage: UNK
     Route: 048
     Dates: start: 20190103

REACTIONS (11)
  - Condition aggravated [Not Recovered/Not Resolved]
  - Pain [Not Recovered/Not Resolved]
  - Joint stiffness [Not Recovered/Not Resolved]
  - Diarrhoea [Not Recovered/Not Resolved]
  - Adverse drug reaction [Unknown]
  - Product dose omission [Not Recovered/Not Resolved]
  - Surgery [Recovered/Resolved]
  - Pruritus generalised [Recovered/Resolved]
  - Skin bacterial infection [Not Recovered/Not Resolved]
  - Musculoskeletal stiffness [Not Recovered/Not Resolved]
  - Butterfly rash [Not Recovered/Not Resolved]

NARRATIVE: CASE EVENT DATE: 201901
